FAERS Safety Report 20054057 (Version 1)
Quarter: 2021Q4

REPORT INFORMATION
  Report Type: Spontaneous
  Country: ID (occurrence: None)
  Receive Date: 20211110
  Receipt Date: 20211110
  Transmission Date: 20220303
  Serious: Yes (Life-Threatening, Hospitalization)
  Sender: FDA-Public Use
  Company Number: None

PATIENT
  Age: 31 Year
  Sex: Female
  Weight: 56 kg

DRUGS (1)
  1. VENOFER [Suspect]
     Active Substance: IRON SUCROSE
     Indication: Iron deficiency anaemia
     Dosage: FREQUENCY : DAILY;?
     Route: 042
     Dates: start: 20210608, end: 20210608

REACTIONS (9)
  - Pyrexia [None]
  - Dyspnoea [None]
  - Cough [None]
  - Arrhythmia [None]
  - Chest pain [None]
  - Back pain [None]
  - Gait inability [None]
  - Urinary retention [None]
  - Tremor [None]

NARRATIVE: CASE EVENT DATE: 20210608
